FAERS Safety Report 7063286-3 (Version None)
Quarter: 2010Q4

REPORT INFORMATION
  Report Type: 
  Country: None (occurrence: None)
  Receive Date: 20101026
  Receipt Date: 20100607
  Transmission Date: 20110411
  Serious: Yes (Other)
  Sender: FDA-Public Use
  Company Number: US-PFIZER INC-2010071680

PATIENT
  Sex: Male

DRUGS (2)
  1. LIPITOR [Suspect]
     Dosage: 10 MG, UNK
  2. AMLODIPINE BESYLATE AND BENAZEPRIL HCL [Concomitant]
     Dosage: 10 MG/20 MG

REACTIONS (1)
  - MUSCLE SPASMS [None]
